FAERS Safety Report 17681483 (Version 1)
Quarter: 2020Q2

REPORT INFORMATION
  Report Type: Spontaneous
  Country: US (occurrence: US)
  Receive Date: 20200417
  Receipt Date: 20200417
  Transmission Date: 20200714
  Serious: Yes (Hospitalization)
  Sender: FDA-Public Use
  Company Number: US-JUBILANT CADISTA PHARMACEUTICALS-2020JUB00127

PATIENT
  Age: 55 Year
  Sex: Male

DRUGS (3)
  1. AMANTADINE HYDROCHLORIDE. [Suspect]
     Active Substance: AMANTADINE HYDROCHLORIDE
     Dosage: 100 MG, 1X/DAY
     Route: 065
  2. AMANTADINE HYDROCHLORIDE. [Suspect]
     Active Substance: AMANTADINE HYDROCHLORIDE
     Dosage: 400 MG, 1X/DAY
     Route: 065
  3. AMANTADINE HYDROCHLORIDE. [Suspect]
     Active Substance: AMANTADINE HYDROCHLORIDE
     Indication: PARKINSON^S DISEASE
     Dosage: 300 MG, 1X/DAY
     Route: 065

REACTIONS (4)
  - Toxicity to various agents [Recovered/Resolved]
  - Fall [Recovered/Resolved]
  - Encephalopathy [Recovered/Resolved]
  - Myoclonus [Recovered/Resolved]
